FAERS Safety Report 19290025 (Version 7)
Quarter: 2022Q4

REPORT INFORMATION
  Report Type: Report from Study
  Country: US (occurrence: US)
  Receive Date: 20210522
  Receipt Date: 20221222
  Transmission Date: 20230113
  Serious: Yes (Other)
  Sender: FDA-Public Use
  Company Number: NVSC2021US110896

PATIENT
  Sex: Male

DRUGS (1)
  1. XIIDRA [Suspect]
     Active Substance: LIFITEGRAST
     Indication: Product used for unknown indication
     Dosage: UNK
     Route: 047

REACTIONS (9)
  - Blindness [Unknown]
  - Dry eye [Unknown]
  - Malaise [Unknown]
  - COVID-19 [Unknown]
  - Borderline glaucoma [Unknown]
  - Asthenia [Unknown]
  - Depression [Unknown]
  - Eye irritation [Unknown]
  - Product quality issue [Unknown]
